FAERS Safety Report 9713723 (Version 6)
Quarter: 2014Q4

REPORT INFORMATION
  Report Type: Spontaneous
  Country: BR (occurrence: BR)
  Receive Date: 20131126
  Receipt Date: 20141014
  Transmission Date: 20150529
  Serious: Yes (Hospitalization, Other)
  Sender: FDA-Public Use
  Company Number: BR-BRISTOL-MYERS SQUIBB COMPANY-19833136

PATIENT
  Age: 70 Year
  Sex: Female

DRUGS (1)
  1. KOMBIGLYZE XR [Suspect]
     Active Substance: METFORMIN HYDROCHLORIDE\SAXAGLIPTIN HYDROCHLORIDE
     Indication: TYPE 2 DIABETES MELLITUS
     Dosage: 1DF: 5 MG/1000 MG -FROM 2012-2013?1TAB?CURRENTLY 2.5 MG/1000 MG : TWICE A DAY
     Route: 048
     Dates: start: 2012

REACTIONS (9)
  - Off label use [Unknown]
  - Abdominal discomfort [Recovered/Resolved]
  - Blood cholesterol increased [Not Recovered/Not Resolved]
  - Pneumonia [Recovered/Resolved]
  - Pleural effusion [Recovered/Resolved]
  - Blood triglycerides increased [Not Recovered/Not Resolved]
  - Abdominal pain upper [Recovered/Resolved]
  - Flatulence [Recovered/Resolved]
  - Frequent bowel movements [Recovered/Resolved]

NARRATIVE: CASE EVENT DATE: 2013
